FAERS Safety Report 24322153 (Version 5)
Quarter: 2025Q3

REPORT INFORMATION
  Report Type: Spontaneous
  Country: US (occurrence: US)
  Receive Date: 20240916
  Receipt Date: 20250816
  Transmission Date: 20251020
  Serious: Yes (Other)
  Sender: ALEXION PHARMACEUTICALS
  Company Number: 2024A200797

PATIENT
  Sex: Female

DRUGS (2)
  1. TAGRISSO [Suspect]
     Active Substance: OSIMERTINIB
     Indication: Lung carcinoma cell type unspecified stage III
     Dosage: 80 MILLIGRAM, QD
     Dates: start: 20240624
  2. TAGRISSO [Suspect]
     Active Substance: OSIMERTINIB
     Dosage: 80 MILLIGRAM, QD
     Dates: start: 20240724

REACTIONS (14)
  - Labile blood pressure [Not Recovered/Not Resolved]
  - Intracranial aneurysm [Not Recovered/Not Resolved]
  - Headache [Unknown]
  - Blood pressure increased [Unknown]
  - Oral pain [Unknown]
  - Skin wound [Unknown]
  - Gingival pain [Unknown]
  - Rash [Unknown]
  - Asthenia [Unknown]
  - Onychoclasis [Unknown]
  - Oral disorder [Unknown]
  - Mouth injury [Unknown]
  - Incorrect dose administered [Unknown]
  - Infection [Unknown]
